FAERS Safety Report 14757897 (Version 3)
Quarter: 2018Q3

REPORT INFORMATION
  Report Type: Spontaneous
  Country: JP (occurrence: JP)
  Receive Date: 20180413
  Receipt Date: 20180724
  Transmission Date: 20181010
  Serious: Yes (Death, Life-Threatening, Hospitalization, Other)
  Sender: FDA-Public Use
  Company Number: JP-ELI_LILLY_AND_COMPANY-JP201803004533

PATIENT
  Age: 67 Year
  Sex: Female
  Weight: 48 kg

DRUGS (4)
  1. ELNEOPA NF NO.1 [Concomitant]
     Indication: NUTRITIONAL SUPPLEMENTATION
     Dosage: 1 L, DAILY
     Route: 041
     Dates: start: 20180403, end: 20180429
  2. INTRALIPOS [Concomitant]
     Active Substance: SOYBEAN OIL
     Indication: NUTRITIONAL SUPPLEMENTATION
     Dosage: 100 ML, DAILY
     Dates: start: 20180403, end: 20180427
  3. MORPHINE [Concomitant]
     Active Substance: MORPHINE
     Indication: DYSPNOEA
     Dosage: 5 MG, PRN
     Dates: start: 20180327, end: 20180409
  4. CYRAMZA [Suspect]
     Active Substance: RAMUCIRUMAB
     Indication: COLON CANCER
     Dosage: UNK
     Route: 041
     Dates: start: 20180110, end: 20180207

REACTIONS (6)
  - Malignant neoplasm progression [Fatal]
  - Pulmonary embolism [Recovering/Resolving]
  - Deep vein thrombosis [Recovered/Resolved]
  - Hypertension [Recovering/Resolving]
  - Proteinuria [Unknown]
  - Spinal compression fracture [Not Recovered/Not Resolved]

NARRATIVE: CASE EVENT DATE: 20180124
